FAERS Safety Report 10583914 (Version 1)
Quarter: 2014Q4

REPORT INFORMATION
  Report Type: Spontaneous
  Country: US (occurrence: None)
  Receive Date: 20141113
  Receipt Date: 20141113
  Transmission Date: 20150529
  Serious: No
  Sender: FDA-Public Use
  Company Number: None

PATIENT
  Age: 21 Year
  Sex: Male
  Weight: 127.01 kg

DRUGS (1)
  1. CELEXA [Suspect]
     Active Substance: CITALOPRAM HYDROBROMIDE
     Indication: DEPRESSION
     Route: 048
     Dates: start: 20141110, end: 20141111

REACTIONS (6)
  - Headache [None]
  - Vision blurred [None]
  - Tension headache [None]
  - Ocular discomfort [None]
  - Tremor [None]
  - Migraine [None]

NARRATIVE: CASE EVENT DATE: 20141110
